FAERS Safety Report 10032496 (Version 1)
Quarter: 2014Q1

REPORT INFORMATION
  Report Type: Report from Study
  Country: CA (occurrence: CA)
  Receive Date: 20140324
  Receipt Date: 20140324
  Transmission Date: 20141002
  Serious: Yes (Hospitalization, Other)
  Sender: FDA-Public Use
  Company Number: CA-ABBVIE-14P-028-1213900-00

PATIENT
  Sex: Male
  Weight: 77.18 kg

DRUGS (1)
  1. HUMIRA [Suspect]
     Indication: CROHN^S DISEASE
     Route: 058
     Dates: start: 20090901, end: 20140226

REACTIONS (7)
  - Small intestinal stenosis [Recovering/Resolving]
  - Small intestinal obstruction [Recovering/Resolving]
  - Abdominal adhesions [Unknown]
  - Hernia [Recovering/Resolving]
  - Malaise [Unknown]
  - Melanocytic naevus [Recovered/Resolved]
  - Anastomotic stenosis [Unknown]
